FAERS Safety Report 21789449 (Version 2)
Quarter: 2023Q1

REPORT INFORMATION
  Report Type: Spontaneous
  Country: JP (occurrence: JP)
  Receive Date: 20221228
  Receipt Date: 20230120
  Transmission Date: 20230418
  Serious: Yes (Death, Other)
  Sender: FDA-Public Use
  Company Number: JP-PFIZER INC-PV202200128391

PATIENT
  Age: 69 Year
  Sex: Male
  Weight: 48.6 kg

DRUGS (1)
  1. PAXLOVID [Suspect]
     Active Substance: NIRMATRELVIR\RITONAVIR
     Indication: COVID-19 treatment
     Dosage: UNK, 2X/DAY
     Route: 048
     Dates: start: 20220825, end: 20220826

REACTIONS (2)
  - Respiratory failure [Fatal]
  - Foaming at mouth [Unknown]

NARRATIVE: CASE EVENT DATE: 20220826
